FAERS Safety Report 7389662-7 (Version None)
Quarter: 2011Q2

REPORT INFORMATION
  Report Type: 
  Country: None (occurrence: None)
  Receive Date: 20110401
  Receipt Date: 20110330
  Transmission Date: 20111010
  Serious: Yes (Other)
  Sender: FDA-Public Use
  Company Number: JP-PFIZER INC-2011028304

PATIENT
  Age: 66 Year
  Sex: Male

DRUGS (4)
  1. NORVASC [Suspect]
     Indication: HYPERTENSION
     Dosage: 5 MG, 1X/DAY
     Route: 048
     Dates: start: 20090316, end: 20110221
  2. NORVASC [Suspect]
     Dosage: 5 MG, 1X/DAY
     Dates: start: 20110314
  3. MECOBALAMIN [Concomitant]
     Indication: SPINAL OSTEOARTHRITIS
     Dosage: 500 UG, 3X/DAY
     Route: 048
     Dates: start: 20100823, end: 20110207
  4. JUVELA NICOTINATE [Concomitant]
     Indication: SPINAL OSTEOARTHRITIS
     Dosage: 100 MG, 3X/DAY
     Route: 048
     Dates: start: 20100823, end: 20110207

REACTIONS (1)
  - BLOOD POTASSIUM INCREASED [None]
